FAERS Safety Report 6452905-8 (Version None)
Quarter: 2009Q4

REPORT INFORMATION
  Report Type: 
  Country: None (occurrence: None)
  Receive Date: 20091124
  Receipt Date: 20081208
  Transmission Date: 20100525
  Serious: No
  Sender: FDA-Public Use
  Company Number: US-ABBOTT-08P-163-0491936-00

PATIENT
  Sex: Male
  Weight: 98.972 kg

DRUGS (15)
  1. TRICOR [Suspect]
     Indication: BLOOD TRIGLYCERIDES INCREASED
     Dates: start: 20061201, end: 20081001
  2. XALATAN [Concomitant]
     Indication: DRUG USE FOR UNKNOWN INDICATION
  3. NORVASC [Concomitant]
     Indication: DRUG USE FOR UNKNOWN INDICATION
  4. DIOVAN HCT [Concomitant]
     Indication: BLOOD PRESSURE
     Dosage: 160/25
  5. VALIUM [Concomitant]
     Indication: DRUG USE FOR UNKNOWN INDICATION
  6. ASPIRIN [Concomitant]
     Indication: DRUG USE FOR UNKNOWN INDICATION
  7. PREVACID [Concomitant]
     Indication: DRUG USE FOR UNKNOWN INDICATION
  8. LORACET [Concomitant]
     Indication: PAIN
     Dosage: 10/650MG AS NEEDED
  9. GLUCOTROL XL [Concomitant]
     Indication: DIABETES MELLITUS
  10. METFORMIN HCL [Concomitant]
     Indication: DRUG USE FOR UNKNOWN INDICATION
  11. ACTOS [Concomitant]
     Indication: DRUG USE FOR UNKNOWN INDICATION
  12. LANTUS [Concomitant]
     Indication: DRUG USE FOR UNKNOWN INDICATION
  13. PLAVIX [Concomitant]
     Indication: DRUG USE FOR UNKNOWN INDICATION
  14. ATENOLOL [Concomitant]
     Indication: DRUG USE FOR UNKNOWN INDICATION
     Dosage: BREAK IN HALF
  15. HYTRIN [Concomitant]
     Indication: PROSTATIC DISORDER

REACTIONS (2)
  - ARTHRALGIA [None]
  - MYALGIA [None]
